FAERS Safety Report 9110441 (Version 1)
Quarter: 2013Q1

REPORT INFORMATION
  Report Type: Spontaneous
  Country: US (occurrence: US)
  Receive Date: 20130219
  Receipt Date: 20130219
  Transmission Date: 20140127
  Serious: Yes (Hospitalization, Other)
  Sender: FDA-Public Use
  Company Number: US-BRACCO-007505

PATIENT
  Age: 60 Year
  Sex: Male

DRUGS (2)
  1. ISOVUE 370 [Suspect]
     Indication: COMPUTERISED TOMOGRAM
     Route: 042
     Dates: start: 20120204, end: 20120204
  2. ISOVUE 370 [Suspect]
     Indication: MASS
     Route: 042
     Dates: start: 20120204, end: 20120204

REACTIONS (1)
  - Anaphylactic shock [Recovered/Resolved]
